FAERS Safety Report 12530497 (Version 1)
Quarter: 2016Q3

REPORT INFORMATION
  Report Type: Spontaneous
  Country: US (occurrence: US)
  Receive Date: 20160706
  Receipt Date: 20160706
  Transmission Date: 20161109
  Serious: No
  Sender: FDA-Public Use
  Company Number: US-009507513-1606USA014278

PATIENT
  Age: 83 Year
  Sex: Male
  Weight: 71.2 kg

DRUGS (1)
  1. PROSCAR [Suspect]
     Active Substance: FINASTERIDE
     Indication: PROSTATISM
     Dosage: UNK
     Route: 048

REACTIONS (1)
  - Rash [Unknown]
